FAERS Safety Report 12194308 (Version 1)
Quarter: 2016Q1

REPORT INFORMATION
  Report Type: Spontaneous
  Country: US (occurrence: None)
  Receive Date: 20160318
  Receipt Date: 20160318
  Transmission Date: 20160526
  Serious: Yes (Hospitalization)
  Sender: FDA-Public Use
  Company Number: None

PATIENT
  Age: 27 Year
  Sex: Female
  Weight: 49.9 kg

DRUGS (2)
  1. REMICADE [Suspect]
     Active Substance: INFLIXIMAB
     Indication: RHEUMATOID ARTHRITIS
     Dosage: 3 VIALS EVERY 8 WEEKS INTO A VEIN
     Route: 042
     Dates: start: 20160127, end: 20160127
  2. DEP SHOT (BIRTHCONTROL) [Concomitant]

REACTIONS (5)
  - Chills [None]
  - Heart rate increased [None]
  - Pyrexia [None]
  - Chest pain [None]
  - Blood pressure increased [None]

NARRATIVE: CASE EVENT DATE: 20160127
